FAERS Safety Report 7679407-5 (Version None)
Quarter: 2011Q3

REPORT INFORMATION
  Report Type: 
  Country: None (occurrence: None)
  Receive Date: 20110812
  Receipt Date: 20110801
  Transmission Date: 20111222
  Serious: Yes (Hospitalization)
  Sender: FDA-Public Use
  Company Number: US-JNJFOC-20110200930

PATIENT
  Sex: Male
  Weight: 40.7 kg

DRUGS (7)
  1. INFLIXIMAB, RECOMBINANT [Suspect]
     Indication: CROHN'S DISEASE
     Route: 042
     Dates: start: 20090520
  2. SULFASALAZINE [Concomitant]
  3. FERROUS SULFATE TAB [Concomitant]
  4. INFLIXIMAB, RECOMBINANT [Suspect]
     Route: 042
     Dates: start: 20090505
  5. PROBIOTIC [Concomitant]
  6. MERCAPTOPURINE [Concomitant]
  7. PREVACID [Concomitant]

REACTIONS (1)
  - CROHN'S DISEASE [None]
